FAERS Safety Report 16468665 (Version 3)
Quarter: 2019Q4

REPORT INFORMATION
  Report Type: Spontaneous
  Country: JP (occurrence: JP)
  Receive Date: 20190624
  Receipt Date: 20191007
  Transmission Date: 20200122
  Serious: Yes (Life-Threatening, Hospitalization, Other)
  Sender: FDA-Public Use
  Company Number: JP-PFIZER INC-2019269082

PATIENT
  Age: 79 Year
  Sex: Female

DRUGS (1)
  1. FOSTOIN [Suspect]
     Active Substance: FOSPHENYTOIN SODIUM
     Indication: STATUS EPILEPTICUS
     Dosage: UNK
     Route: 041
     Dates: start: 20190610, end: 20190610

REACTIONS (4)
  - Bradycardia [Not Recovered/Not Resolved]
  - Atrioventricular block [Recovering/Resolving]
  - Hypopnoea [Recovering/Resolving]
  - Blood pressure decreased [Recovering/Resolving]

NARRATIVE: CASE EVENT DATE: 20190610
